FAERS Safety Report 12465544 (Version 1)
Quarter: 2016Q2

REPORT INFORMATION
  Report Type: Spontaneous
  Country: US (occurrence: US)
  Receive Date: 20160614
  Receipt Date: 20160614
  Transmission Date: 20160815
  Serious: Yes (Other)
  Sender: FDA-Public Use
  Company Number: US-PFIZER INC-2016295413

PATIENT
  Sex: Female

DRUGS (1)
  1. DETROL LA [Suspect]
     Active Substance: TOLTERODINE TARTRATE

REACTIONS (4)
  - Respiratory tract infection [Unknown]
  - Malaise [Unknown]
  - Asthma [Unknown]
  - Hypersensitivity [Unknown]
